FAERS Safety Report 8252530-2 (Version None)
Quarter: 2012Q2

REPORT INFORMATION
  Report Type: 
  Country: None (occurrence: None)
  Receive Date: 20120402
  Receipt Date: 20111102
  Transmission Date: 20120825
  Serious: No
  Sender: FDA-Public Use
  Company Number: US-ABBOTT-11P-163-0871044-00

PATIENT
  Sex: Female
  Weight: 65.83 kg

DRUGS (2)
  1. TAMOXIFEN CITRATE [Concomitant]
     Indication: PRODUCT USED FOR UNKNOWN INDICATION
  2. ANDROGEL [Suspect]
     Indication: LIBIDO DISORDER
     Route: 061

REACTIONS (4)
  - INSOMNIA [None]
  - LIBIDO DISORDER [None]
  - PALPITATIONS [None]
  - FLATULENCE [None]
